FAERS Safety Report 5422254-5 (Version None)
Quarter: 2007Q3

REPORT INFORMATION
  Report Type: 
  Country: None (occurrence: None)
  Receive Date: 20070822
  Receipt Date: 20070813
  Transmission Date: 20080115
  Serious: Yes (Death)
  Sender: FDA-Public Use
  Company Number: AT-AVENTIS-200713964EU

PATIENT
  Age: 56 Year
  Sex: Female

DRUGS (3)
  1. TRENTAL [Suspect]
     Route: 048
  2. HALCION [Concomitant]
     Route: 048
  3. THOMAPYRIN                         /00391201/ [Concomitant]
     Indication: HEADACHE
     Route: 048

REACTIONS (1)
  - INTENTIONAL OVERDOSE [None]
